FAERS Safety Report 9827051 (Version 1)
Quarter: 2014Q1

REPORT INFORMATION
  Report Type: Spontaneous
  Country: US (occurrence: US)
  Receive Date: 20140117
  Receipt Date: 20140117
  Transmission Date: 20141002
  Serious: No
  Sender: FDA-Public Use
  Company Number: US-GLAXOSMITHKLINE-A1028194A

PATIENT
  Age: 57 Year
  Sex: Female

DRUGS (1)
  1. PROMACTA [Suspect]
     Indication: PANCYTOPENIA
     Dosage: 50MG UNKNOWN

REACTIONS (1)
  - Off label use [Unknown]
